FAERS Safety Report 4954199-9 (Version None)
Quarter: 2006Q1

REPORT INFORMATION
  Report Type: 
  Country: None (occurrence: None)
  Receive Date: 20060327
  Receipt Date: 20060320
  Transmission Date: 20060701
  Serious: Yes (Other)
  Sender: FDA-Public Use
  Company Number: US-BRISTOL-MYERS SQUIBB COMPANY-13322813

PATIENT
  Age: 63 Year
  Sex: Female

DRUGS (3)
  1. ESTRACE [Suspect]
     Indication: MENOPAUSAL SYMPTOMS
  2. PREMARIN [Suspect]
     Indication: MENOPAUSAL SYMPTOMS
  3. PROVERA [Suspect]
     Indication: MENOPAUSAL SYMPTOMS

REACTIONS (1)
  - BREAST CANCER [None]
